FAERS Safety Report 14943739 (Version 4)
Quarter: 2023Q1

REPORT INFORMATION
  Report Type: Report from Study
  Country: US (occurrence: US)
  Receive Date: 20180528
  Receipt Date: 20230331
  Transmission Date: 20230417
  Serious: Yes (Death, Hospitalization, Other)
  Sender: FDA-Public Use
  Company Number: US-BRISTOL-MYERS SQUIBB COMPANY-BMS-2018-047628

PATIENT
  Age: 45 Year
  Sex: Female
  Weight: 83.300 kg

DRUGS (2)
  1. NIVOLUMAB [Suspect]
     Active Substance: NIVOLUMAB
     Indication: Papillary renal cell carcinoma
     Dosage: 240 MG, UNK
     Route: 042
     Dates: start: 20180426, end: 20180510
  2. IPILIMUMAB [Suspect]
     Active Substance: IPILIMUMAB
     Indication: Papillary renal cell carcinoma
     Dosage: 84 MG, UNK
     Route: 042
     Dates: start: 20180426, end: 20180426

REACTIONS (5)
  - Malignant neoplasm progression [Fatal]
  - Atrial fibrillation [Recovering/Resolving]
  - Hyperthyroidism [Recovering/Resolving]
  - Blood bilirubin increased [Recovering/Resolving]
  - Anaemia [Recovering/Resolving]

NARRATIVE: CASE EVENT DATE: 20180510
